FAERS Safety Report 9247345 (Version 1)
Quarter: 2013Q2

REPORT INFORMATION
  Report Type: Spontaneous
  Country: US (occurrence: US)
  Receive Date: 20130423
  Receipt Date: 20130423
  Transmission Date: 20140414
  Serious: Yes (Other)
  Sender: FDA-Public Use
  Company Number: US-JNJFOC-20130408098

PATIENT
  Age: 82 Year
  Sex: Male
  Weight: 72.58 kg

DRUGS (8)
  1. XARELTO [Suspect]
     Indication: CEREBROVASCULAR ACCIDENT PROPHYLAXIS
     Route: 048
     Dates: start: 201301
  2. XARELTO [Suspect]
     Indication: ATRIAL FIBRILLATION
     Route: 048
     Dates: start: 201301
  3. LISINOPRIL [Concomitant]
     Route: 065
     Dates: start: 201205
  4. PANTOPRAZOLE SODIUM [Concomitant]
     Route: 048
     Dates: start: 201205
  5. SIMVASTATIN [Concomitant]
     Indication: BLOOD CHOLESTEROL
     Route: 048
  6. CENTRUM SILVER [Concomitant]
     Route: 065
  7. FISH OIL [Concomitant]
     Route: 065
  8. VITAMIN D [Concomitant]
     Route: 065

REACTIONS (2)
  - Swollen tongue [Unknown]
  - Oral discomfort [Unknown]
